FAERS Safety Report 7378127-4 (Version None)
Quarter: 2011Q1

REPORT INFORMATION
  Report Type: 
  Country: None (occurrence: None)
  Receive Date: 20110328
  Receipt Date: 20110322
  Transmission Date: 20110831
  Serious: Yes (Other)
  Sender: FDA-Public Use
  Company Number: IL-ABBOTT-11P-082-0708229-00

PATIENT
  Sex: Male

DRUGS (4)
  1. HUMIRA [Suspect]
  2. HUMIRA [Suspect]
     Dates: start: 20110116
  3. HUMIRA [Suspect]
     Indication: CROHN'S DISEASE
     Dates: start: 20090101
  4. HUMIRA [Suspect]

REACTIONS (10)
  - ILEOCOLECTOMY [None]
  - ABDOMINAL MASS [None]
  - FISTULA [None]
  - INJECTION SITE ERYTHEMA [None]
  - INJECTION SITE SWELLING [None]
  - BLISTER [None]
  - INTESTINAL ANASTOMOSIS [None]
  - INJECTION SITE REACTION [None]
  - DIARRHOEA HAEMORRHAGIC [None]
  - DRUG INEFFECTIVE [None]
